FAERS Safety Report 9390694 (Version 1)
Quarter: 2020Q3

REPORT INFORMATION
  Report Type: Report from Study
  Country: IT (occurrence: IT)
  Receive Date: 20130709
  Receipt Date: 20130709
  Transmission Date: 20201104
  Serious: Yes (Hospitalization)
  Sender: FDA-Public Use
  Company Number: IT-JNJFOC-20130700699

PATIENT
  Sex: Male
  Weight: 68 kg

DRUGS (32)
  1. BLINDED; INFLIXIMAB, RECOMBINANT [Suspect]
     Active Substance: INFLIXIMAB
     Indication: CROHN^S DISEASE
     Dosage: WEEK 0
     Route: 042
     Dates: start: 20130306
  2. PLACEBO [Suspect]
     Active Substance: UNSPECIFIED INGREDIENT
     Indication: CROHN^S DISEASE
     Dosage: WEEK 32
     Route: 042
     Dates: start: 20121109
  3. FLEBOCORTID [Concomitant]
     Indication: PREMEDICATION
     Route: 065
     Dates: start: 20120402, end: 20120402
  4. FLEBOCORTID [Concomitant]
     Indication: PREMEDICATION
     Route: 065
     Dates: start: 20120604, end: 20120604
  5. TRIMETON [Concomitant]
     Active Substance: CHLORPHENIRAMINE MALEATE
     Indication: PREMEDICATION
     Route: 065
     Dates: start: 20130509, end: 20130509
  6. TRIMETON [Concomitant]
     Active Substance: CHLORPHENIRAMINE MALEATE
     Indication: PREMEDICATION
     Route: 065
     Dates: start: 20120924, end: 20120924
  7. TRIMETON [Concomitant]
     Active Substance: CHLORPHENIRAMINE MALEATE
     Indication: PREMEDICATION
     Route: 065
     Dates: start: 20130109, end: 20130109
  8. PLACEBO [Suspect]
     Active Substance: UNSPECIFIED INGREDIENT
     Indication: CROHN^S DISEASE
     Dosage: WEEK 0
     Route: 042
     Dates: start: 20120402
  9. PLACEBO [Suspect]
     Active Substance: UNSPECIFIED INGREDIENT
     Indication: CROHN^S DISEASE
     Dosage: WEEK 40
     Route: 042
     Dates: start: 20130109
  10. FLEBOCORTID [Concomitant]
     Indication: PREMEDICATION
     Route: 065
     Dates: start: 20120924, end: 20120924
  11. TRIMETON [Concomitant]
     Active Substance: CHLORPHENIRAMINE MALEATE
     Indication: PREMEDICATION
     Route: 065
     Dates: start: 20121109, end: 20121109
  12. BLINDED; INFLIXIMAB, RECOMBINANT [Suspect]
     Active Substance: INFLIXIMAB
     Indication: CROHN^S DISEASE
     Dosage: WEEK 0
     Route: 042
     Dates: start: 20130509
  13. BLINDED; INFLIXIMAB, RECOMBINANT [Suspect]
     Active Substance: INFLIXIMAB
     Indication: CROHN^S DISEASE
     Dosage: WEEK 0
     Route: 042
     Dates: start: 20120924
  14. PLACEBO [Suspect]
     Active Substance: UNSPECIFIED INGREDIENT
     Indication: CROHN^S DISEASE
     Dosage: WEEK 8
     Route: 042
     Dates: start: 20120604
  15. PLACEBO [Suspect]
     Active Substance: UNSPECIFIED INGREDIENT
     Indication: CROHN^S DISEASE
     Dosage: WEEK 48
     Route: 042
     Dates: start: 20130306
  16. PLACEBO [Suspect]
     Active Substance: UNSPECIFIED INGREDIENT
     Indication: CROHN^S DISEASE
     Dosage: WEEK 16
     Route: 042
     Dates: start: 20120725
  17. FLEBOCORTID [Concomitant]
     Indication: PREMEDICATION
     Route: 065
     Dates: start: 20120725, end: 20120725
  18. BLINDED; INFLIXIMAB, RECOMBINANT [Suspect]
     Active Substance: INFLIXIMAB
     Indication: CROHN^S DISEASE
     Dosage: WEEK 0
     Route: 042
     Dates: start: 20130109
  19. BLINDED; INFLIXIMAB, RECOMBINANT [Suspect]
     Active Substance: INFLIXIMAB
     Indication: CROHN^S DISEASE
     Dosage: WEEK 0
     Route: 042
     Dates: start: 20121109
  20. TRIMETON [Concomitant]
     Active Substance: CHLORPHENIRAMINE MALEATE
     Indication: PREMEDICATION
     Route: 065
     Dates: start: 20120725, end: 20120725
  21. PLACEBO [Suspect]
     Active Substance: UNSPECIFIED INGREDIENT
     Indication: CROHN^S DISEASE
     Dosage: WEEK 56
     Route: 042
     Dates: start: 20130509
  22. BLINDED; INFLIXIMAB, RECOMBINANT [Suspect]
     Active Substance: INFLIXIMAB
     Indication: CROHN^S DISEASE
     Dosage: WEEK 0
     Route: 042
     Dates: start: 20120725
  23. PLACEBO [Suspect]
     Active Substance: UNSPECIFIED INGREDIENT
     Indication: CROHN^S DISEASE
     Dosage: WEEK 24
     Route: 042
     Dates: start: 20120924
  24. BLINDED; INFLIXIMAB, RECOMBINANT [Suspect]
     Active Substance: INFLIXIMAB
     Indication: CROHN^S DISEASE
     Dosage: WEEK 0
     Route: 042
     Dates: start: 20120604
  25. TRIMETON [Concomitant]
     Active Substance: CHLORPHENIRAMINE MALEATE
     Indication: PREMEDICATION
     Route: 065
     Dates: start: 20130306, end: 20130306
  26. TRIMETON [Concomitant]
     Active Substance: CHLORPHENIRAMINE MALEATE
     Indication: PREMEDICATION
     Route: 065
     Dates: start: 20120604, end: 20120604
  27. BLINDED; INFLIXIMAB, RECOMBINANT [Suspect]
     Active Substance: INFLIXIMAB
     Indication: CROHN^S DISEASE
     Dosage: WEEK 0
     Route: 042
     Dates: start: 20120402
  28. FLEBOCORTID [Concomitant]
     Indication: PREMEDICATION
     Route: 065
     Dates: start: 20130306, end: 20130306
  29. FLEBOCORTID [Concomitant]
     Indication: PREMEDICATION
     Route: 065
     Dates: start: 20121109, end: 20121109
  30. FLEBOCORTID [Concomitant]
     Indication: PREMEDICATION
     Route: 065
     Dates: start: 20130109, end: 20130109
  31. FLEBOCORTID [Concomitant]
     Indication: PREMEDICATION
     Route: 065
     Dates: start: 20130509, end: 20130509
  32. TRIMETON [Concomitant]
     Active Substance: CHLORPHENIRAMINE MALEATE
     Indication: PREMEDICATION
     Route: 065
     Dates: start: 20120402, end: 20120402

REACTIONS (4)
  - Pyrexia [Recovered/Resolved]
  - Diarrhoea [Recovered/Resolved]
  - Herpes simplex [Recovered/Resolved]
  - Abdominal pain [Recovered/Resolved]

NARRATIVE: CASE EVENT DATE: 20130623
